FAERS Safety Report 9519744 (Version 3)
Quarter: 2016Q1

REPORT INFORMATION
  Report Type: Spontaneous
  Country: JP (occurrence: JP)
  Receive Date: 20130912
  Receipt Date: 20160331
  Transmission Date: 20160526
  Serious: Yes (Hospitalization, Other)
  Sender: FDA-Public Use
  Company Number: JP-TEVA-430982ISR

PATIENT
  Age: 62 Year
  Sex: Male
  Weight: 70 kg

DRUGS (6)
  1. TRISONEX [Suspect]
     Active Substance: ARSENIC TRIOXIDE
     Indication: ACUTE PROMYELOCYTIC LEUKAEMIA
     Dosage: 10 MILLIGRAM DAILY;
     Route: 041
     Dates: start: 20120507, end: 20120817
  2. NOVORAPID [Concomitant]
     Active Substance: INSULIN ASPART
     Dates: start: 20120116
  3. LANTUS [Concomitant]
     Active Substance: INSULIN GLARGINE
     Dates: start: 20120116
  4. CYLOCIDE [Suspect]
     Active Substance: CYTARABINE
     Route: 065
  5. METHOTREXATE [Concomitant]
     Active Substance: METHOTREXATE
  6. GASTER [Concomitant]
     Active Substance: FAMOTIDINE
     Dates: start: 20120116

REACTIONS (4)
  - Herpes zoster [Recovering/Resolving]
  - Hepatitis B DNA assay positive [Recovered/Resolved]
  - Neutropenia [Unknown]
  - Ventricular tachycardia [Recovered/Resolved]

NARRATIVE: CASE EVENT DATE: 20120713
